FAERS Safety Report 23816754 (Version 1)
Quarter: 2024Q2

REPORT INFORMATION
  Report Type: Report from Study
  Country: IT (occurrence: IT)
  Receive Date: 20240504
  Receipt Date: 20240504
  Transmission Date: 20240715
  Serious: Yes (Other)
  Sender: FDA-Public Use
  Company Number: None

PATIENT
  Age: 81 Year
  Sex: Female

DRUGS (11)
  1. OLMESARTAN MEDOXOMIL [Suspect]
     Active Substance: OLMESARTAN MEDOXOMIL
     Indication: Product used for unknown indication
     Dosage: 20MG
  2. PLAVIX [Concomitant]
     Active Substance: CLOPIDOGREL BISULFATE
  3. COLCHICINE [Concomitant]
     Active Substance: COLCHICINE
  4. TEGRETOL [Concomitant]
     Active Substance: CARBAMAZEPINE
  5. DOBETIN [Concomitant]
  6. OLMESARTAN MEDOXOMIL [Concomitant]
     Active Substance: OLMESARTAN MEDOXOMIL
  7. ATORVASTATIN\EZETIMIBE [Concomitant]
     Active Substance: ATORVASTATIN\EZETIMIBE
  8. FOLIC ACID [Concomitant]
     Active Substance: FOLIC ACID
  9. VENLAFAXINE HYDROCHLORIDE [Concomitant]
     Active Substance: VENLAFAXINE HYDROCHLORIDE
  10. CALCIFEDIOL [Concomitant]
     Active Substance: CALCIFEDIOL
  11. LORAZEPAM [Concomitant]
     Active Substance: LORAZEPAM

REACTIONS (2)
  - Syncope [Recovering/Resolving]
  - Incontinence [Recovering/Resolving]

NARRATIVE: CASE EVENT DATE: 20240408
